FAERS Safety Report 6637933-1 (Version None)
Quarter: 2010Q1

REPORT INFORMATION
  Report Type: 
  Country: None (occurrence: None)
  Receive Date: 20100315
  Receipt Date: 20100315
  Transmission Date: 20100710
  Serious: No
  Sender: FDA-Public Use
  Company Number: None

PATIENT
  Age: 69 Year
  Sex: Female
  Weight: 65.7716 kg

DRUGS (1)
  1. SAVELLA [Suspect]
     Indication: FIBROMYALGIA
     Dosage: 50MG ONCE A DAY PO
     Route: 048
     Dates: start: 20090919, end: 20100228

REACTIONS (3)
  - ANXIETY [None]
  - BLOOD PRESSURE ABNORMAL [None]
  - HALLUCINATION, AUDITORY [None]
